FAERS Safety Report 20981841 (Version 1)
Quarter: 2022Q2

REPORT INFORMATION
  Report Type: Spontaneous
  Country: US (occurrence: US)
  Receive Date: 20220620
  Receipt Date: 20220620
  Transmission Date: 20220720
  Serious: No
  Sender: FDA-Public Use
  Company Number: US-PFIZER INC-202200845194

PATIENT
  Age: 62 Year
  Sex: Female

DRUGS (1)
  1. PREMARIN [Suspect]
     Active Substance: ESTROGENS, CONJUGATED
     Indication: Hysterectomy
     Dosage: 0.45 MG, 1X/DAY (EVERY NIGHT)

REACTIONS (3)
  - Product dose omission issue [Unknown]
  - Off label use [Unknown]
  - Feeling hot [Unknown]

NARRATIVE: CASE EVENT DATE: 20220613
